FAERS Safety Report 25200529 (Version 1)
Quarter: 2025Q2

REPORT INFORMATION
  Report Type: Spontaneous
  Country: IL (occurrence: IL)
  Receive Date: 20250415
  Receipt Date: 20250415
  Transmission Date: 20250717
  Serious: Yes (Other)
  Sender: TEVA
  Company Number: IL-TEVA-VS-3318041

PATIENT
  Age: 74 Year
  Sex: Female

DRUGS (2)
  1. COPAXONE [Suspect]
     Active Substance: GLATIRAMER ACETATE
     Indication: Product used for unknown indication
     Route: 065
  2. COPAXONE [Suspect]
     Active Substance: GLATIRAMER ACETATE
     Indication: Product used for unknown indication
     Route: 065

REACTIONS (6)
  - Near death experience [Unknown]
  - Immediate post-injection reaction [Unknown]
  - Chest discomfort [Unknown]
  - Muscle strain [Unknown]
  - Adverse drug reaction [Unknown]
  - Flushing [Unknown]
